FAERS Safety Report 10058247 (Version 1)
Quarter: 2014Q2

REPORT INFORMATION
  Report Type: Spontaneous
  Country: CN (occurrence: CN)
  Receive Date: 20140404
  Receipt Date: 20140404
  Transmission Date: 20141212
  Serious: Yes (Other)
  Sender: FDA-Public Use
  Company Number: CN-JNJFOC-20140318752

PATIENT
  Age: 17 Year
  Sex: Female

DRUGS (2)
  1. REMICADE [Suspect]
     Indication: CROHN^S DISEASE
     Dosage: 7TH INFUSION
     Route: 042
     Dates: start: 20140325, end: 20140325
  2. REMICADE [Suspect]
     Indication: CROHN^S DISEASE
     Dosage: 100 MG*1
     Route: 042

REACTIONS (8)
  - Dyspnoea [Recovering/Resolving]
  - Hypoaesthesia [Recovering/Resolving]
  - Blood pressure decreased [Recovering/Resolving]
  - Lip swelling [Recovering/Resolving]
  - VIIth nerve paralysis [Recovering/Resolving]
  - Oral mucosal blistering [Recovering/Resolving]
  - Infusion related reaction [Recovering/Resolving]
  - Diarrhoea [Recovering/Resolving]
